FAERS Safety Report 17988445 (Version 1)
Quarter: 2020Q3

REPORT INFORMATION
  Report Type: Spontaneous
  Country: ES (occurrence: ES)
  Receive Date: 20200707
  Receipt Date: 20200707
  Transmission Date: 20201103
  Serious: Yes (Death, Life-Threatening, Hospitalization, Other)
  Sender: FDA-Public Use
  Company Number: ES-BAYER-2020-129874

PATIENT
  Age: 69 Year
  Sex: Male

DRUGS (25)
  1. AMIKACIN. [Suspect]
     Active Substance: AMIKACIN
     Indication: TRACHEOBRONCHITIS
     Dosage: UNK
     Dates: start: 20180627
  2. METRONIDAZOLE. [Suspect]
     Active Substance: METRONIDAZOLE
     Indication: PSEUDOMEMBRANOUS COLITIS
     Dosage: UNK
     Route: 042
     Dates: start: 20180707
  3. TOBRAMYCIN. [Suspect]
     Active Substance: TOBRAMYCIN
     Indication: TRACHEOBRONCHITIS
     Dosage: UNK
     Route: 055
     Dates: start: 20180723
  4. MEROPENEM. [Suspect]
     Active Substance: MEROPENEM
     Indication: PSEUDOMONAS INFECTION
     Dosage: UNK
     Dates: start: 20180612
  5. AMIKACIN. [Suspect]
     Active Substance: AMIKACIN
     Indication: PSEUDOMONAL BACTERAEMIA
     Dosage: UNK
     Dates: start: 20180703
  6. CEFTAZIDIME. [Suspect]
     Active Substance: CEFTAZIDIME
     Indication: TRACHEOBRONCHITIS
     Dosage: UNK
     Dates: start: 20180723
  7. TOBRAMYCIN. [Suspect]
     Active Substance: TOBRAMYCIN
     Indication: STENOTROPHOMONAS INFECTION
  8. COTRIMOXAZOLE [Suspect]
     Active Substance: SULFAMETHOXAZOLE\TRIMETHOPRIM
     Indication: TRACHEOBRONCHITIS
  9. TIGECYCLINE. [Suspect]
     Active Substance: TIGECYCLINE
     Indication: ENTEROBACTER BACTERAEMIA
     Dosage: UNK
     Dates: start: 20180813
  10. CIPROFLOXACIN BETAIN [Suspect]
     Active Substance: CIPROFLOXACIN
     Dosage: UNK
     Route: 042
     Dates: start: 20180627
  11. GANCICLOVIR. [Suspect]
     Active Substance: GANCICLOVIR
     Indication: CYTOMEGALOVIRUS COLITIS
     Dosage: UNK
     Dates: start: 20180808
  12. TEICOPLANIN [Suspect]
     Active Substance: TEICOPLANIN
     Indication: DEVICE RELATED BACTERAEMIA
     Dosage: UNK
     Dates: start: 20180712
  13. TIGECYCLINE. [Suspect]
     Active Substance: TIGECYCLINE
     Indication: POSTOPERATIVE WOUND INFECTION
  14. MEROPENEM. [Suspect]
     Active Substance: MEROPENEM
     Indication: POSTOPERATIVE WOUND INFECTION
     Dosage: UNK
     Dates: start: 20180606
  15. VANCOMYCIN [Suspect]
     Active Substance: VANCOMYCIN
     Indication: PSEUDOMEMBRANOUS COLITIS
     Dosage: UNK
     Route: 054
     Dates: start: 20180707
  16. TEICOPLANIN [Suspect]
     Active Substance: TEICOPLANIN
     Indication: STREPTOCOCCAL BACTERAEMIA
  17. CEFEPIME [Suspect]
     Active Substance: CEFEPIME HYDROCHLORIDE
     Indication: PSEUDOMONAL BACTERAEMIA
     Dosage: UNK
     Dates: start: 20180627
  18. CEFTAZIDIME. [Suspect]
     Active Substance: CEFTAZIDIME
     Indication: STENOTROPHOMONAS INFECTION
  19. COLISTIN [Suspect]
     Active Substance: COLISTIN
     Indication: TRACHEOBRONCHITIS
     Dosage: UNK
     Route: 042
     Dates: start: 20180703
  20. COLISTIN [Suspect]
     Active Substance: COLISTIN
     Indication: PSEUDOMONAS INFECTION
  21. MEROPENEM. [Suspect]
     Active Substance: MEROPENEM
     Indication: ENTEROBACTER BACTERAEMIA
     Dosage: UNK
     Dates: start: 20180813
  22. VANCOMYCIN [Suspect]
     Active Substance: VANCOMYCIN
     Indication: PSEUDOMEMBRANOUS COLITIS
     Dosage: UNK
     Route: 048
     Dates: start: 20180707
  23. FOSCARNET [Suspect]
     Active Substance: FOSCARNET
     Indication: CYTOMEGALOVIRUS COLITIS
     Dosage: UNK
     Dates: start: 20180808
  24. TIGECYCLINE. [Suspect]
     Active Substance: TIGECYCLINE
     Indication: KLEBSIELLA BACTERAEMIA
     Dosage: UNK
     Dates: start: 20180815
  25. COTRIMOXAZOLE [Suspect]
     Active Substance: SULFAMETHOXAZOLE\TRIMETHOPRIM
     Indication: STENOTROPHOMONAS INFECTION
     Dosage: UNK
     Route: 042
     Dates: start: 20180723

REACTIONS (8)
  - Thrombocytopenia [None]
  - Atrial fibrillation [Fatal]
  - Flavobacterium infection [Fatal]
  - Multiple organ dysfunction syndrome [Fatal]
  - Leukopenia [None]
  - Septic shock [Fatal]
  - Renal failure [Fatal]
  - Hypotension [Unknown]

NARRATIVE: CASE EVENT DATE: 20180823
